FAERS Safety Report 12951051 (Version 1)
Quarter: 2016Q4

REPORT INFORMATION
  Report Type: Spontaneous
  Country: US (occurrence: US)
  Receive Date: 20161117
  Receipt Date: 20161117
  Transmission Date: 20170207
  Serious: Yes (Other)
  Sender: FDA-Public Use
  Company Number: US-BAYER-2016-214273

PATIENT
  Sex: Female

DRUGS (3)
  1. AVELOX [Suspect]
     Active Substance: MOXIFLOXACIN HYDROCHLORIDE
     Indication: URINARY TRACT INFECTION
     Dosage: 7 DF, UNK
     Route: 048
     Dates: start: 20160727
  2. AVELOX [Suspect]
     Active Substance: MOXIFLOXACIN HYDROCHLORIDE
     Indication: URINARY TRACT INFECTION
     Dosage: 7 DF, UNK
     Route: 048
     Dates: start: 20160808
  3. AVELOX [Suspect]
     Active Substance: MOXIFLOXACIN HYDROCHLORIDE
     Indication: URINARY TRACT INFECTION
     Dosage: 5 DF, UNK
     Route: 048
     Dates: start: 20160723

REACTIONS (6)
  - Tendonitis [Recovering/Resolving]
  - Vomiting [Recovering/Resolving]
  - Paraesthesia [Recovering/Resolving]
  - Joint swelling [Recovering/Resolving]
  - Pain in extremity [Recovering/Resolving]
  - Nausea [Recovering/Resolving]
